FAERS Safety Report 6646410-3 (Version None)
Quarter: 2010Q1

REPORT INFORMATION
  Report Type: 
  Country: None (occurrence: None)
  Receive Date: 20100323
  Receipt Date: 20100311
  Transmission Date: 20100710
  Serious: Yes (Hospitalization)
  Sender: FDA-Public Use
  Company Number: DE-BAYER-201018164GPV

PATIENT
  Age: 39 Year
  Sex: Female
  Weight: 64 kg

DRUGS (1)
  1. YASMIN [Suspect]
     Indication: CONTRACEPTION
     Route: 048
     Dates: start: 20040101, end: 20100223

REACTIONS (7)
  - BEDRIDDEN [None]
  - DEEP VEIN THROMBOSIS [None]
  - DYSPNOEA [None]
  - PAINFUL RESPIRATION [None]
  - PLEURAL EFFUSION [None]
  - PNEUMONIA [None]
  - PULMONARY EMBOLISM [None]
